FAERS Safety Report 7342750-3 (Version None)
Quarter: 2011Q1

REPORT INFORMATION
  Report Type: 
  Country: None (occurrence: None)
  Receive Date: 20110310
  Receipt Date: 20110228
  Transmission Date: 20110831
  Serious: Yes (Hospitalization, Other)
  Sender: FDA-Public Use
  Company Number: US-SANOFI-AVENTIS-2011SA012860

PATIENT
  Sex: Female

DRUGS (2)
  1. LOVENOX [Suspect]
     Indication: ANTICOAGULANT THERAPY
     Route: 065
     Dates: start: 20110201
  2. COUMADIN [Concomitant]
     Indication: HYPERCOAGULATION

REACTIONS (1)
  - HYPERGLYCAEMIA [None]
